FAERS Safety Report 22157535 (Version 1)
Quarter: 2023Q1

REPORT INFORMATION
  Report Type: Spontaneous
  Country: CZ (occurrence: CZ)
  Receive Date: 20230330
  Receipt Date: 20230330
  Transmission Date: 20230418
  Serious: Yes (Life-Threatening, Other)
  Sender: FDA-Public Use
  Company Number: CZ-CZPHARMAP-OLIKLA20230307d_Lit

PATIENT
  Sex: Male

DRUGS (1)
  1. ACYCLOVIR [Suspect]
     Active Substance: ACYCLOVIR
     Indication: Product used for unknown indication
     Dosage: DOSE OF 3 X 750 MG EVERY 8 H (I.E., A DOSE 3 TIMES HIGHER)
     Route: 042

REACTIONS (2)
  - Encephalopathy [Recovered/Resolved]
  - Acute kidney injury [Recovered/Resolved]
